FAERS Safety Report 4594937-0 (Version None)
Quarter: 2005Q1

REPORT INFORMATION
  Report Type: 
  Country: None (occurrence: None)
  Receive Date: 20050223
  Receipt Date: 20050113
  Transmission Date: 20050727
  Serious: Yes (Hospitalization, Disabling)
  Sender: FDA-Public Use
  Company Number: 2005021843

PATIENT
  Sex: Female

DRUGS (2)
  1. CELEBREX [Suspect]
     Indication: ARTHRALGIA
     Dates: start: 20030628
  2. RANITIDINE [Suspect]
     Indication: NAUSEA
     Dates: start: 20030708

REACTIONS (6)
  - INSOMNIA [None]
  - LEG AMPUTATION [None]
  - NAUSEA [None]
  - OEDEMA PERIPHERAL [None]
  - PRURITUS GENERALISED [None]
  - SKIN DISCOLOURATION [None]
